FAERS Safety Report 9990757 (Version 4)
Quarter: 2014Q2

REPORT INFORMATION
  Report Type: Spontaneous
  Country: US (occurrence: US)
  Receive Date: 20140310
  Receipt Date: 20140416
  Transmission Date: 20141212
  Serious: No
  Sender: FDA-Public Use
  Company Number: US-PFIZER INC-2013361588

PATIENT
  Age: 60 Year
  Sex: Female

DRUGS (11)
  1. ENBREL [Suspect]
     Dosage: UNK
  2. METHOTREXATE [Suspect]
     Dosage: UNK
  3. FELDENE [Suspect]
     Dosage: UNK
  4. TRAMADOL HYDROCHLORIDE [Suspect]
     Dosage: 50 MG, UNK
  5. PREDNISONE [Suspect]
     Dosage: 10 MG, UNK
  6. ARAVA [Suspect]
     Dosage: UNK
  7. HUMIRA [Suspect]
     Dosage: UNK
  8. HYDROXYCHLOROQUINE SULFATE [Suspect]
     Dosage: UNK
  9. ORENCIA [Suspect]
     Dosage: UNK
  10. SIMPONI [Suspect]
     Dosage: UNK
  11. ULTRAM [Suspect]
     Dosage: UNK

REACTIONS (2)
  - Drug hypersensitivity [Unknown]
  - Drug ineffective [Unknown]
